FAERS Safety Report 9681156 (Version 1)
Quarter: 2013Q4

REPORT INFORMATION
  Report Type: Spontaneous
  Country: US (occurrence: US)
  Receive Date: 20131111
  Receipt Date: 20131111
  Transmission Date: 20140711
  Serious: Yes (Other)
  Sender: FDA-Public Use
  Company Number: US-MPIJNJ-2013MPI000819

PATIENT
  Age: 77 Year
  Sex: Female
  Weight: 67.9 kg

DRUGS (1)
  1. VELCADE [Suspect]
     Indication: PLASMA CELL MYELOMA
     Dosage: 1.3 MG/M2, ON DAYS 1, 8, 15 AND 22 EVERY 21 DAYS
     Route: 042
     Dates: start: 20110214, end: 20111114

REACTIONS (1)
  - Second primary malignancy [Unknown]
